FAERS Safety Report 9760252 (Version 2)
Quarter: 2015Q3

REPORT INFORMATION
  Report Type: Spontaneous
  Country: US (occurrence: US)
  Receive Date: 20131216
  Receipt Date: 20150805
  Transmission Date: 20151125
  Serious: No
  Sender: FDA-Public Use
  Company Number: US-GILEAD-2010-0027840

PATIENT
  Age: 71 Year
  Sex: Female
  Weight: 63.5 kg

DRUGS (12)
  1. LETAIRIS [Suspect]
     Active Substance: AMBRISENTAN
     Indication: PULMONARY ARTERIAL HYPERTENSION
     Route: 048
     Dates: start: 20090903
  2. TOPROL XL [Concomitant]
     Active Substance: METOPROLOL SUCCINATE
  3. COENZYME Q10 [Concomitant]
     Active Substance: UBIDECARENONE
  4. CENTRUM SILVER [Concomitant]
     Active Substance: VITAMINS
  5. COUMADIN [Concomitant]
     Active Substance: WARFARIN SODIUM
  6. ALTACE [Concomitant]
     Active Substance: RAMIPRIL
  7. FISH OIL [Concomitant]
     Active Substance: FISH OIL
  8. CRESTOR [Concomitant]
     Active Substance: ROSUVASTATIN CALCIUM
  9. CALCIUM +D [Concomitant]
     Active Substance: CALCIUM\VITAMIN D
  10. VITAMIN C [Concomitant]
     Active Substance: ASCORBIC ACID
  11. NORVASC [Concomitant]
     Active Substance: AMLODIPINE BESYLATE
  12. COZAAR [Concomitant]
     Active Substance: LOSARTAN POTASSIUM

REACTIONS (1)
  - Nasal congestion [Unknown]
